FAERS Safety Report 9331574 (Version 1)
Quarter: 2013Q2

REPORT INFORMATION
  Report Type: Spontaneous
  Country: US (occurrence: US)
  Receive Date: 20130605
  Receipt Date: 20130605
  Transmission Date: 20140414
  Serious: Yes (Other)
  Sender: FDA-Public Use
  Company Number: US-ASTRAZENECA-2013SE31457

PATIENT
  Age: 54 Year
  Sex: Male
  Weight: 90.7 kg

DRUGS (6)
  1. NEXIUM [Suspect]
     Indication: ULCER
     Route: 048
     Dates: start: 201203, end: 201211
  2. NEXIUM [Suspect]
     Indication: GASTROOESOPHAGEAL REFLUX DISEASE
     Route: 048
     Dates: start: 201203, end: 201211
  3. OMEPRAZOLE [Suspect]
     Route: 048
  4. SIMVASTATIN [Concomitant]
     Indication: BLOOD CHOLESTEROL ABNORMAL
  5. BLOOD THINNER [Concomitant]
     Indication: ATRIAL FIBRILLATION
  6. BETA BLOCKER [Concomitant]

REACTIONS (13)
  - Cerebrovascular accident [Unknown]
  - Blood cholesterol increased [Unknown]
  - Atrial fibrillation [Unknown]
  - Palpitations [Unknown]
  - Gastritis [Unknown]
  - Throat irritation [Unknown]
  - Aphagia [Unknown]
  - Dyspepsia [Unknown]
  - Hypertension [Unknown]
  - Sleep disorder due to general medical condition, insomnia type [Unknown]
  - Weight increased [Unknown]
  - Weight decreased [Unknown]
  - Drug ineffective [Unknown]
